FAERS Safety Report 6420893-6 (Version None)
Quarter: 2009Q4

REPORT INFORMATION
  Report Type: 
  Country: None (occurrence: None)
  Receive Date: 20091030
  Receipt Date: 20091020
  Transmission Date: 20100525
  Serious: Yes (Hospitalization)
  Sender: FDA-Public Use
  Company Number: JP-JNJFOC-20091002646

PATIENT
  Sex: Female

DRUGS (11)
  1. CRAVIT [Suspect]
     Route: 048
  2. CRAVIT [Suspect]
     Route: 048
  3. CRAVIT [Suspect]
     Indication: PULMONARY TUBERCULOSIS
     Route: 048
  4. ADALAT CC [Suspect]
     Indication: HYPERTENSION
     Route: 048
  5. PREDNISOLONE [Suspect]
     Indication: RHEUMATOID ARTHRITIS
     Route: 048
  6. LANSOPRAZOLE [Concomitant]
     Indication: GASTRIC ULCER
     Route: 048
  7. ISCOTIN [Concomitant]
     Indication: TUBERCULOSIS
     Route: 048
  8. PYDOXAL [Concomitant]
     Indication: TUBERCULOSIS
     Route: 048
  9. ESANBUTOL [Concomitant]
     Indication: TUBERCULOSIS
     Route: 048
  10. GLUFAST [Concomitant]
     Indication: DIABETES MELLITUS
     Route: 048
  11. MIYA-BM [Concomitant]
     Route: 048

REACTIONS (6)
  - CLONIC CONVULSION [None]
  - DIZZINESS [None]
  - DYSKINESIA [None]
  - HYPONATRAEMIA [None]
  - MALAISE [None]
  - RENAL IMPAIRMENT [None]
